FAERS Safety Report 10872248 (Version 1)
Quarter: 2015Q1

REPORT INFORMATION
  Report Type: Spontaneous
  Country: FR (occurrence: FR)
  Receive Date: 20150226
  Receipt Date: 20150226
  Transmission Date: 20150721
  Serious: Yes (Other)
  Sender: FDA-Public Use
  Company Number: FR-MERCK-1502FRA009810

PATIENT
  Age: 71 Year
  Sex: Female

DRUGS (13)
  1. HYDROCORTISONE. [Concomitant]
     Active Substance: HYDROCORTISONE
  2. VIREAD [Concomitant]
     Active Substance: TENOFOVIR DISOPROXIL FUMARATE
     Indication: HIV INFECTION
  3. KARDEGIC [Concomitant]
     Active Substance: ASPIRIN LYSINE
  4. DAFALGAN [Concomitant]
     Active Substance: ACETAMINOPHEN
  5. ELISOR [Concomitant]
     Active Substance: PRAVASTATIN SODIUM
  6. DEBRIDAT [Concomitant]
     Active Substance: TRIMEBUTINE MALEATE
  7. PIRILENE [Concomitant]
     Active Substance: PYRAZINAMIDE
  8. INEXIUM (ESOMEPRAZOLE MAGNESIUM) [Concomitant]
     Active Substance: ESOMEPRAZOLE MAGNESIUM
  9. TOPALGIC (SUPROFEN) [Concomitant]
     Active Substance: SUPROFEN
  10. STILNOX [Concomitant]
     Active Substance: ZOLPIDEM TARTRATE
  11. EMTRIVA [Concomitant]
     Active Substance: EMTRICITABINE
     Indication: HIV INFECTION
  12. ISENTRESS [Suspect]
     Active Substance: RALTEGRAVIR POTASSIUM
     Indication: HIV INFECTION
     Dosage: 400 MG, BID
     Route: 048
     Dates: start: 201409, end: 20141101
  13. RIFINAH [Concomitant]
     Active Substance: ISONIAZID\RIFAMPIN

REACTIONS (4)
  - Drug level above therapeutic [Recovered/Resolved]
  - Pruritus [Unknown]
  - Paraesthesia oral [Unknown]
  - Diarrhoea [Unknown]

NARRATIVE: CASE EVENT DATE: 201410
